FAERS Safety Report 12400384 (Version 1)
Quarter: 2016Q2

REPORT INFORMATION
  Report Type: Spontaneous
  Country: US (occurrence: US)
  Receive Date: 20160525
  Receipt Date: 20160525
  Transmission Date: 20160815
  Serious: Yes (Other)
  Sender: FDA-Public Use
  Company Number: US-TEVA-661028USA

PATIENT
  Age: 37 Year
  Sex: Female

DRUGS (1)
  1. COPAXONE [Suspect]
     Active Substance: GLATIRAMER ACETATE
     Indication: MULTIPLE SCLEROSIS
     Route: 058
     Dates: start: 20151206, end: 20151215

REACTIONS (8)
  - Pruritus [Recovered/Resolved]
  - Immediate post-injection reaction [Recovered/Resolved]
  - Cough [Recovered/Resolved]
  - Anaphylactic reaction [Recovered/Resolved]
  - Wheezing [Recovered/Resolved]
  - Anxiety [Recovered/Resolved]
  - Urticaria [Recovered/Resolved]
  - Heart rate increased [Recovered/Resolved]

NARRATIVE: CASE EVENT DATE: 201512
